FAERS Safety Report 8246921-3 (Version None)
Quarter: 2012Q1

REPORT INFORMATION
  Report Type: 
  Country: None (occurrence: None)
  Receive Date: 20120330
  Receipt Date: 20120322
  Transmission Date: 20120608
  Serious: Yes (Hospitalization)
  Sender: FDA-Public Use
  Company Number: JP-JNJFOC-20120308597

PATIENT
  Sex: Male

DRUGS (3)
  1. DORIPENEM MONOHYDRATE [Suspect]
     Indication: BRONCHITIS
     Dosage: 0.25 G TWICE DAILY
     Route: 041
     Dates: start: 20120223, end: 20120304
  2. BROMHEXINE HYDROCHLORIDE [Concomitant]
     Indication: BRONCHITIS CHRONIC
     Route: 042
     Dates: start: 20120221
  3. DORIPENEM MONOHYDRATE [Suspect]
     Indication: PNEUMONIA
     Dosage: 0.25 G TWICE DAILY
     Route: 041
     Dates: start: 20120223, end: 20120304

REACTIONS (1)
  - HEPATIC ENZYME INCREASED [None]
